FAERS Safety Report 9642848 (Version 1)
Quarter: 2013Q4

REPORT INFORMATION
  Report Type: Spontaneous
  Country: GB (occurrence: GB)
  Receive Date: 20131024
  Receipt Date: 20131024
  Transmission Date: 20140711
  Serious: Yes (Other)
  Sender: FDA-Public Use
  Company Number: GB-TEVA-438262ISR

PATIENT
  Age: 58 Year
  Sex: Female

DRUGS (10)
  1. BISOPROLOL [Suspect]
     Route: 048
     Dates: start: 2012, end: 2013
  2. BISOPROLOL [Suspect]
     Route: 048
     Dates: start: 2011
  3. PREDNISOLONE [Concomitant]
     Indication: SYSTEMIC LUPUS ERYTHEMATOSUS
     Dosage: OVER LAST 16 YEARS. FORM OF ADMIN: SOLUBLE TABLET
     Route: 048
  4. FLECAINIDE [Concomitant]
  5. RAMIPRIL [Concomitant]
  6. HYDROXYCHLOROQUINE [Concomitant]
  7. ROSUVASTATIN [Concomitant]
  8. SALBUTAMOL SULFATE [Concomitant]
  9. OXIS [Concomitant]
     Route: 055
  10. FLUTICASONE [Concomitant]

REACTIONS (5)
  - Heart rate decreased [Recovered/Resolved]
  - Dyspnoea [Recovered/Resolved]
  - Syncope [Recovered/Resolved]
  - Fluid retention [Recovered/Resolved]
  - Diarrhoea [Recovered/Resolved]
